FAERS Safety Report 9025112 (Version 1)
Quarter: 2013Q1

REPORT INFORMATION
  Report Type: Spontaneous
  Country: US (occurrence: US)
  Receive Date: 20130122
  Receipt Date: 20130122
  Transmission Date: 20140127
  Serious: Yes (Hospitalization, Other)
  Sender: FDA-Public Use
  Company Number: US-009507513-1106USA02750

PATIENT
  Sex: 0

DRUGS (6)
  1. FOSAMAX [Suspect]
     Indication: OSTEOPENIA
     Dosage: 70 MG, QW
     Route: 048
     Dates: start: 200403, end: 201008
  2. FOSAMAX [Suspect]
     Indication: OSTEOPOROSIS PROPHYLAXIS
  3. VITAMIN D (UNSPECIFIED) [Concomitant]
     Dosage: 1000 U, QD
     Dates: start: 2004
  4. CALCI-MIX [Concomitant]
     Dosage: 500 MG, QD
     Dates: start: 2004
  5. FOSAMAX [Suspect]
     Dosage: 70 MG, QW
     Route: 048
     Dates: start: 20080903, end: 200909
  6. VITAMINS (UNSPECIFIED) [Concomitant]

REACTIONS (40)
  - Femur fracture [Unknown]
  - Open reduction of fracture [Unknown]
  - Fall [Unknown]
  - Impaired healing [Not Recovered/Not Resolved]
  - Peptic ulcer [Unknown]
  - Drug ineffective [Unknown]
  - Invasive ductal breast carcinoma [Unknown]
  - Pain [Unknown]
  - Sleep disorder [Unknown]
  - Hypertension [Unknown]
  - Blood cholesterol increased [Unknown]
  - Arthralgia [Unknown]
  - Liver operation [Unknown]
  - Hepatic cyst [Unknown]
  - Spinal disorder [Unknown]
  - Haemorrhagic anaemia [Unknown]
  - Hypokalaemia [Unknown]
  - Escherichia urinary tract infection [Unknown]
  - Escherichia sepsis [Unknown]
  - Delirium [Recovered/Resolved]
  - Hypergammaglobulinaemia benign monoclonal [Unknown]
  - Osteoarthritis [Unknown]
  - Diverticulitis [Unknown]
  - Renal failure acute [Recovered/Resolved]
  - Lumbar radiculopathy [Unknown]
  - Spinal column stenosis [Unknown]
  - Spondylolisthesis [Unknown]
  - Oedema [Unknown]
  - Spinal disorder [Unknown]
  - Tooth disorder [Unknown]
  - Breast disorder [Unknown]
  - Fallopian tube disorder [Unknown]
  - Back pain [Unknown]
  - Foot deformity [Unknown]
  - Heart rate irregular [Unknown]
  - Gastrooesophageal reflux disease [Unknown]
  - Insomnia [Unknown]
  - Myositis [Unknown]
  - Fatigue [Unknown]
  - Erythema [Unknown]
